FAERS Safety Report 24298110 (Version 1)
Quarter: 2024Q3

REPORT INFORMATION
  Report Type: Spontaneous
  Country: IR (occurrence: IR)
  Receive Date: 20240909
  Receipt Date: 20240909
  Transmission Date: 20241017
  Serious: Yes (Hospitalization, Other)
  Sender: AMNEAL
  Company Number: IR-AMNEAL PHARMACEUTICALS-2024-AMRX-03269

PATIENT
  Age: 21 Year
  Sex: Male

DRUGS (2)
  1. CAPECITABINE [Suspect]
     Active Substance: CAPECITABINE
     Indication: Adenocarcinoma of colon
     Dosage: 1000 MG/M2, TWICE DAILY ON DAYS 1-14, ADMINISTERED OVER EIGHT SESSIONS AT 21-DAY INTERVALS
     Route: 048
  2. OXALIPLATIN [Suspect]
     Active Substance: OXALIPLATIN
     Indication: Adenocarcinoma of colon
     Dosage: 130 MG/M2, ON DAY 1
     Route: 042

REACTIONS (6)
  - Cardiac haemangioma benign [Recovered/Resolved]
  - Myocardial injury [Recovered/Resolved]
  - Cardiac failure [Recovered/Resolved]
  - Tachypnoea [Recovered/Resolved]
  - Atelectasis [Recovered/Resolved]
  - Pleural effusion [Recovered/Resolved]
